FAERS Safety Report 4858009-X (Version None)
Quarter: 2005Q4

REPORT INFORMATION
  Report Type: 
  Country: None (occurrence: None)
  Receive Date: 20051219
  Receipt Date: 20050427
  Transmission Date: 20060501
  Serious: No
  Sender: FDA-Public Use
  Company Number: US-GLAXOSMITHKLINE-A0556166A

PATIENT
  Age: 54 Year
  Sex: Female

DRUGS (7)
  1. NICODERM CQ [Suspect]
  2. PHENOBARBITAL [Concomitant]
  3. CLONAZEPAM [Concomitant]
  4. PROGESTERONE [Concomitant]
  5. ESTRADIOL INJ [Concomitant]
  6. EFFEXOR [Concomitant]
  7. TRAZODONE HCL [Concomitant]

REACTIONS (1)
  - DRUG INEFFECTIVE [None]
